FAERS Safety Report 7025128-1 (Version None)
Quarter: 2010Q3

REPORT INFORMATION
  Report Type: 
  Country: None (occurrence: None)
  Receive Date: 20100916
  Receipt Date: 20100720
  Transmission Date: 20110219
  Serious: Yes (Other)
  Sender: FDA-Public Use
  Company Number: DKLU1063458

PATIENT
  Age: 2 Year
  Sex: Male

DRUGS (3)
  1. SABRIL [Suspect]
     Indication: INFANTILE SPASMS
     Dosage: 500 MG MILLIGRAM(S), 2 IN 1 D, ORAL
     Route: 048
     Dates: start: 20100619
  2. CARNITOR [Suspect]
     Indication: PRODUCT USED FOR UNKNOWN INDICATION
     Dosage: 250 MG MILLIGRAM(S), 2 IN 1 D, ORAL
     Route: 048
  3. DEPAKENE [Concomitant]

REACTIONS (4)
  - EAR INFECTION [None]
  - MUSCULAR WEAKNESS [None]
  - PNEUMONIA [None]
  - RASH [None]
